FAERS Safety Report 10870271 (Version 1)
Quarter: 2015Q1

REPORT INFORMATION
  Report Type: Spontaneous
  Country: US (occurrence: US)
  Receive Date: 20150226
  Receipt Date: 20150226
  Transmission Date: 20150721
  Serious: No
  Sender: FDA-Public Use
  Company Number: US-DRREDDYS-USA/USA/14/0045091

PATIENT
  Age: 60 Year
  Sex: Male

DRUGS (1)
  1. CLOPIDOGREL BISULFATE 75 MG [Suspect]
     Active Substance: CLOPIDOGREL BISULFATE
     Indication: PRODUCT USED FOR UNKNOWN INDICATION
     Route: 048

REACTIONS (4)
  - Product colour issue [Unknown]
  - Product taste abnormal [Unknown]
  - Product odour abnormal [Unknown]
  - No adverse event [Unknown]
